FAERS Safety Report 23207603 (Version 1)
Quarter: 2023Q4

REPORT INFORMATION
  Report Type: Report from Study
  Country: CA (occurrence: CA)
  Receive Date: 20231120
  Receipt Date: 20231120
  Transmission Date: 20240109
  Serious: Yes (Other)
  Sender: FDA-Public Use
  Company Number: CA-ABBVIE-5502131

PATIENT
  Age: 56 Year
  Sex: Male

DRUGS (1)
  1. HUMIRA [Suspect]
     Active Substance: ADALIMUMAB
     Indication: Colitis ulcerative
     Route: 058
     Dates: start: 20220510

REACTIONS (5)
  - Illness [Not Recovered/Not Resolved]
  - Haematochezia [Unknown]
  - Haemoglobin decreased [Unknown]
  - Cold sweat [Unknown]
  - Malaise [Unknown]

NARRATIVE: CASE EVENT DATE: 20231101
